FAERS Safety Report 4883686-7 (Version None)
Quarter: 2006Q1

REPORT INFORMATION
  Report Type: 
  Country: None (occurrence: None)
  Receive Date: 20060118
  Receipt Date: 20051028
  Transmission Date: 20060701
  Serious: Yes (Other)
  Sender: FDA-Public Use
  Company Number: DE-SANOFI-SYNTHELABO-A04200500927

PATIENT
  Sex: Male
  Weight: 62 kg

DRUGS (3)
  1. PLAVIX [Suspect]
     Indication: STENT PLACEMENT
     Route: 048
     Dates: start: 20051001
  2. ASPIRIN [Concomitant]
     Indication: STENT PLACEMENT
     Route: 048
     Dates: start: 20051001
  3. SIMVABETA [Concomitant]
     Indication: DRUG USE FOR UNKNOWN INDICATION
     Route: 048

REACTIONS (3)
  - APHASIA [None]
  - DISORIENTATION [None]
  - MEMORY IMPAIRMENT [None]
